FAERS Safety Report 19470108 (Version 2)
Quarter: 2021Q4

REPORT INFORMATION
  Report Type: Report from Study
  Country: ZA (occurrence: ZA)
  Receive Date: 20210629
  Receipt Date: 20211111
  Transmission Date: 20220303
  Serious: Yes (Death, Other)
  Sender: FDA-Public Use
  Company Number: ZA-NOVOPROD-823210

PATIENT
  Age: 59 Year
  Sex: Male

DRUGS (5)
  1. GLUCOPHAGE [Concomitant]
     Active Substance: METFORMIN HYDROCHLORIDE
     Indication: Diabetes mellitus
     Dosage: 1000 MG
     Route: 048
     Dates: end: 202104
  2. AMILORETIC [AMILORIDE;HYDROCHLOROTHIAZIDE] [Concomitant]
     Indication: Hypertension
     Dosage: 5/50 MG
     Route: 048
     Dates: end: 202104
  3. ALLOPURINOL [Concomitant]
     Active Substance: ALLOPURINOL
     Indication: Gout
     Dosage: 300 MG
     Route: 048
     Dates: end: 202104
  4. NIFEDIPINE [Concomitant]
     Active Substance: NIFEDIPINE
     Indication: Hypertension
     Dosage: 20 MG
     Route: 048
     Dates: end: 202104
  5. INSULIN ASPART [Suspect]
     Active Substance: INSULIN ASPART
     Indication: Diabetes mellitus
     Dosage: UNK
     Route: 058
     Dates: end: 202104

REACTIONS (4)
  - Blood glucose increased [Fatal]
  - Myocardial infarction [Fatal]
  - Blood pressure increased [Fatal]
  - COVID-19 [Unknown]
